FAERS Safety Report 15968704 (Version 1)
Quarter: 2019Q1

REPORT INFORMATION
  Report Type: Other
  Country: GR (occurrence: GR)
  Receive Date: 20190215
  Receipt Date: 20190215
  Transmission Date: 20190418
  Serious: Yes (Life-Threatening)
  Sender: FDA-Public Use
  Company Number: GR-SERVIER-S19001273

PATIENT

DRUGS (7)
  1. TN UNSPECIFIED [Concomitant]
     Active Substance: TROLNITRATE
     Dosage: UNK
     Route: 037
     Dates: start: 20120113, end: 20120113
  2. ONCASPAR [Suspect]
     Active Substance: PEGASPARGASE
     Indication: ACUTE LYMPHOCYTIC LEUKAEMIA
     Dosage: 2900 IU
     Route: 042
     Dates: start: 20120115, end: 20120115
  3. ARACYTINE [Concomitant]
     Active Substance: CYTARABINE
     Dosage: UNK
     Route: 042
  4. DECADRON [Concomitant]
     Active Substance: DEXAMETHASONE
     Dosage: UNK
     Route: 042
  5. PREDNISOLONE. [Concomitant]
     Active Substance: PREDNISOLONE
     Dosage: UNK
     Route: 037
     Dates: start: 20120113, end: 20120113
  6. ARACYTINE [Concomitant]
     Active Substance: CYTARABINE
     Dosage: UNK
     Route: 042
     Dates: start: 20120113, end: 20120113
  7. VEPESID [Concomitant]
     Active Substance: ETOPOSIDE
     Dosage: UNK
     Route: 042

REACTIONS (9)
  - Pallor [Recovered/Resolved]
  - Hyperhidrosis [Recovered/Resolved]
  - Chills [Recovered/Resolved]
  - Abdominal pain [Recovered/Resolved]
  - Nausea [Recovered/Resolved]
  - Anal incontinence [Recovered/Resolved]
  - Hypotension [Recovered/Resolved]
  - Myalgia [Recovered/Resolved]
  - Dizziness [Recovered/Resolved]

NARRATIVE: CASE EVENT DATE: 20120115
